FAERS Safety Report 15694322 (Version 1)
Quarter: 2018Q4

REPORT INFORMATION
  Report Type: Spontaneous
  Country: US (occurrence: US)
  Receive Date: 20181206
  Receipt Date: 20181206
  Transmission Date: 20190205
  Serious: No
  Sender: FDA-Public Use
  Company Number: US-TEVA-2018-US-982332

PATIENT
  Sex: Female

DRUGS (3)
  1. METOPROLOL. [Suspect]
     Active Substance: METOPROLOL
     Indication: BLOOD PRESSURE MEASUREMENT
     Dosage: EXTENDED RELEASE
     Dates: start: 2011
  2. METOPROLOL. [Suspect]
     Active Substance: METOPROLOL
     Dosage: EXTENDED RELEASE
  3. COQ10COQ10 [Concomitant]

REACTIONS (3)
  - Blood pressure increased [Unknown]
  - Alopecia [Unknown]
  - Drug ineffective [Unknown]

NARRATIVE: CASE EVENT DATE: 2016
